FAERS Safety Report 9853848 (Version 2)
Quarter: 2014Q1

REPORT INFORMATION
  Report Type: Report from Study
  Country: JP (occurrence: JP)
  Receive Date: 20140129
  Receipt Date: 20140307
  Transmission Date: 20141002
  Serious: Yes (Hospitalization, Other)
  Sender: FDA-Public Use
  Company Number: JP-TAKEDA-2014TUS000617

PATIENT
  Sex: 0

DRUGS (7)
  1. FEBURIC [Suspect]
     Indication: HYPERURICAEMIA
     Dosage: 20 MG, QD
     Route: 048
     Dates: start: 20121109
  2. MAINTATE [Concomitant]
     Indication: HYPERTENSION
     Dosage: 5 MG, QD
     Route: 048
     Dates: start: 20030516
  3. DIOVAN [Concomitant]
     Indication: HYPERTENSION
     Dosage: 80 MG, QD
     Route: 048
     Dates: start: 20030516
  4. HERBESSER R [Concomitant]
     Indication: HYPERTENSION
     Dosage: 100 MG, QD
     Route: 048
     Dates: start: 20070216
  5. GLYCYRON                           /00466401/ [Concomitant]
     Indication: HEPATOCELLULAR CARCINOMA
     Dosage: 3 DF, QD
     Route: 048
     Dates: start: 20030516
  6. GLYCYRON                           /00466401/ [Concomitant]
     Indication: LIVER DISORDER
  7. DAIKENTYUTO [Concomitant]
     Indication: HEPATOCELLULAR CARCINOMA
     Dosage: UNK

REACTIONS (2)
  - Hepatocellular carcinoma [Recovering/Resolving]
  - Acute tonsillitis [Recovered/Resolved]
